FAERS Safety Report 6732201-1 (Version None)
Quarter: 2010Q2

REPORT INFORMATION
  Report Type: 
  Country: None (occurrence: None)
  Receive Date: 20100519
  Receipt Date: 20100511
  Transmission Date: 20101027
  Serious: Yes (Hospitalization)
  Sender: FDA-Public Use
  Company Number: A0794737A

PATIENT
  Age: 59 Year
  Sex: Female

DRUGS (1)
  1. AVANDIA [Suspect]
     Route: 048
     Dates: start: 20020208, end: 20061222

REACTIONS (5)
  - DYSPNOEA [None]
  - PALPITATIONS [None]
  - PERICARDIAL EFFUSION [None]
  - RESPIRATORY DISORDER [None]
  - SWELLING [None]
